FAERS Safety Report 4749328-6 (Version None)
Quarter: 2005Q3

REPORT INFORMATION
  Report Type: 
  Country: None (occurrence: None)
  Receive Date: 20050812
  Receipt Date: 20050608
  Transmission Date: 20060218
  Serious: No
  Sender: FDA-Public Use
  Company Number: 407374

PATIENT
  Sex: Male
  Weight: 68 kg

DRUGS (9)
  1. PEGASYS [Suspect]
     Indication: HEPATITIS C
     Dosage: 180 MCG SUBCUTANEOUS
     Route: 058
     Dates: start: 20050330, end: 20050509
  2. RIBASPHERE [Suspect]
     Indication: HEPATITIS C
     Dosage: 400 MG 2 PER DAY ORAL
     Route: 048
     Dates: start: 20050330, end: 20050509
  3. OLANZAPINE [Concomitant]
  4. ZOLOFT [Concomitant]
  5. TRAZODONE HCL [Concomitant]
  6. ACYCLOVIR [Concomitant]
  7. DOCUSATE (DOCUSATE SODIUM) [Concomitant]
  8. NAPROXEN [Concomitant]
  9. PRILOSEC [Concomitant]

REACTIONS (1)
  - THROMBOCYTOPENIA [None]
